FAERS Safety Report 13182549 (Version 1)
Quarter: 2017Q1

REPORT INFORMATION
  Report Type: Spontaneous
  Country: US (occurrence: US)
  Receive Date: 20170203
  Receipt Date: 20170203
  Transmission Date: 20170428
  Serious: No
  Sender: FDA-Public Use
  Company Number: US-PFIZER INC-2017045387

PATIENT
  Sex: Male

DRUGS (2)
  1. SUTENT [Suspect]
     Active Substance: SUNITINIB MALATE
     Indication: RENAL CELL CARCINOMA
     Dosage: 50 MG, CYCLIC (4/2 SCHEDULE; CURRENTLY IN 55TH SUTENT CYCLE)
     Dates: start: 201010, end: 201510
  2. SUTENT [Suspect]
     Active Substance: SUNITINIB MALATE
     Dosage: 37.5 MG, CYCLIC (4/2 SCHEDULE)

REACTIONS (13)
  - Intentional product use issue [Unknown]
  - Vomiting [Unknown]
  - Food intolerance [Unknown]
  - Skin disorder [Unknown]
  - Nausea [Unknown]
  - Glossodynia [Unknown]
  - Neuralgia [Unknown]
  - Muscle spasms [Unknown]
  - Gastrooesophageal reflux disease [Unknown]
  - Dehydration [Unknown]
  - Fatigue [Unknown]
  - Ageusia [Unknown]
  - Diarrhoea [Unknown]
